FAERS Safety Report 8886087 (Version 6)
Quarter: 2014Q2

REPORT INFORMATION
  Report Type: Spontaneous
  Country: JP (occurrence: JP)
  Receive Date: 20121105
  Receipt Date: 20140408
  Transmission Date: 20141212
  Serious: Yes (Death, Life-Threatening, Hospitalization)
  Sender: FDA-Public Use
  Company Number: JP-EISAI INC-E7389-02922-SPO-JP

PATIENT
  Age: 65 Year
  Sex: Female
  Weight: 48 kg

DRUGS (7)
  1. HALAVEN [Suspect]
     Indication: BREAST CANCER RECURRENT
     Dosage: 1.4 MG/M2
     Route: 041
     Dates: start: 20120719
  2. CEROCRAL [Concomitant]
  3. CELECOX [Concomitant]
  4. PROTECADIN [Concomitant]
  5. ALDACTONE A [Concomitant]
  6. OXYCONTIN [Concomitant]
  7. ZOMETA [Concomitant]
     Indication: METASTASES TO BONE
     Route: 041
     Dates: end: 20121005

REACTIONS (5)
  - Respiratory failure [Fatal]
  - Toxic epidermal necrolysis [Not Recovered/Not Resolved]
  - Malaise [Recovering/Resolving]
  - Stomatitis [Recovering/Resolving]
  - Decreased appetite [Recovering/Resolving]
